FAERS Safety Report 20013732 (Version 1)
Quarter: 2021Q4

REPORT INFORMATION
  Report Type: Spontaneous
  Country: US (occurrence: US)
  Receive Date: 20211029
  Receipt Date: 20211029
  Transmission Date: 20220303
  Serious: Yes (Disabling, Other)
  Sender: FDA-Public Use
  Company Number: US-TEVA-2021-US-1972920

PATIENT
  Age: 54 Year
  Sex: Female

DRUGS (12)
  1. DOCETAXEL [Suspect]
     Active Substance: DOCETAXEL
     Indication: Invasive ductal breast carcinoma
     Dosage: DOSAGE:168MG NUMBER OF CYCLE-04, FREQUENCY-EVERY THREE WEEKS
     Route: 042
     Dates: start: 20150310, end: 20150512
  2. DOCETAXEL [Suspect]
     Active Substance: DOCETAXEL
     Indication: Invasive ductal breast carcinoma
     Dosage: DOSAGE:168MG NUMBER OF CYCLE-04, FREQUENCY-EVERY THREE WEEKS
     Route: 042
     Dates: start: 20150310, end: 20150512
  3. DOCETAXEL [Suspect]
     Active Substance: DOCETAXEL
     Indication: Invasive ductal breast carcinoma
     Dosage: DOSAGE:168MG NUMBER OF CYCLE - 04, FREQUENCY-EVERY THREE WEEKS
     Route: 042
     Dates: start: 20150310, end: 20150512
  4. CYTOXAN [Suspect]
     Active Substance: CYCLOPHOSPHAMIDE
     Indication: Invasive ductal breast carcinoma
     Dosage: DOSAGE:1344MG NUMBER OF CYCLE- 04, FREQUENCY-EVERY THREE WEEKS
     Route: 042
     Dates: start: 20150310, end: 20150512
  5. EMEND [Concomitant]
     Active Substance: APREPITANT
     Dosage: DOSE: 150MG
     Route: 042
     Dates: start: 20150310, end: 20150512
  6. DECADRON [Concomitant]
     Active Substance: DEXAMETHASONE
     Dosage: DOSE:12 MG
     Route: 042
     Dates: start: 20150310, end: 20150512
  7. DECADRON [Concomitant]
     Active Substance: DEXAMETHASONE
     Dosage: DOSE: 2 TABLET BID X 2 DAYS, THEN 1 BID X 1 DAY
     Route: 048
     Dates: start: 20150303
  8. ALOXI [Concomitant]
     Active Substance: PALONOSETRON HYDROCHLORIDE
     Dosage: DOSE: 0.25MG
     Route: 042
     Dates: start: 20150310, end: 20150512
  9. NEULASTA [Concomitant]
     Active Substance: PEGFILGRASTIM
     Dosage: DOSAGE: 6 MG
     Route: 065
     Dates: start: 20150311, end: 20150513
  10. ARMOUR THYROID [Concomitant]
     Active Substance: THYROID, PORCINE
     Indication: Hypothyroidism
     Dosage: 60 MILLIGRAM DAILY;
     Route: 048
     Dates: start: 2010
  11. LEXAPRO [Concomitant]
     Active Substance: ESCITALOPRAM OXALATE
     Dosage: 10 MILLIGRAM DAILY;
     Route: 048
     Dates: start: 2014
  12. ONDANSETRON HYDROCHLORIDE [Concomitant]
     Active Substance: ONDANSETRON HYDROCHLORIDE
     Dosage: DOSAGE: 4 MG EVERY 4-6 HOUR AS NEEDED
     Route: 048
     Dates: start: 20150303

REACTIONS (10)
  - Alopecia areata [Not Recovered/Not Resolved]
  - Thrombocytopenia [Unknown]
  - Neutropenia [Unknown]
  - Hair texture abnormal [Not Recovered/Not Resolved]
  - Hair colour changes [Not Recovered/Not Resolved]
  - Fatigue [Unknown]
  - Nausea [Recovered/Resolved]
  - Bone pain [Recovered/Resolved]
  - Transaminases increased [Unknown]
  - Folliculitis [Unknown]

NARRATIVE: CASE EVENT DATE: 20150301
